FAERS Safety Report 5556519-3 (Version None)
Quarter: 2007Q4

REPORT INFORMATION
  Report Type: 
  Country: None (occurrence: None)
  Receive Date: 20071213
  Receipt Date: 20070906
  Transmission Date: 20080405
  Serious: No
  Sender: FDA-Public Use
  Company Number: US-AMGEN-KDL242038

PATIENT
  Sex: Female

DRUGS (13)
  1. ENBREL [Suspect]
     Indication: RHEUMATOID ARTHRITIS
     Route: 058
     Dates: start: 20070801, end: 20070901
  2. METHOTREXATE [Concomitant]
  3. FOLIC ACID [Concomitant]
  4. PREDNISONE [Concomitant]
  5. DYAZIDE [Concomitant]
  6. PREVACID [Concomitant]
  7. ATENOLOL [Concomitant]
  8. ALBUTEROL [Concomitant]
  9. SEREVENT [Concomitant]
  10. FLONASE [Concomitant]
  11. XANAX [Concomitant]
  12. PERCOCET [Concomitant]
  13. VITAMINS [Concomitant]

REACTIONS (5)
  - INJECTION SITE ERYTHEMA [None]
  - INJECTION SITE HYPERSENSITIVITY [None]
  - INJECTION SITE SWELLING [None]
  - INJECTION SITE URTICARIA [None]
  - INJECTION SITE WARMTH [None]
